FAERS Safety Report 20860862 (Version 1)
Quarter: 2022Q2

REPORT INFORMATION
  Report Type: Spontaneous
  Country: US (occurrence: None)
  Receive Date: 20220521
  Receipt Date: 20220521
  Transmission Date: 20220721
  Serious: Yes (Hospitalization)
  Sender: FDA-Public Use
  Company Number: None

PATIENT
  Sex: Male
  Weight: 98.6 kg

DRUGS (6)
  1. METHOTREXATE [Suspect]
     Active Substance: METHOTREXATE
     Dates: end: 20220510
  2. CYCLOPHOSPHAMIDE [Suspect]
     Active Substance: CYCLOPHOSPHAMIDE
     Dates: end: 20220425
  3. CYTARABINE [Suspect]
     Active Substance: CYTARABINE
     Dates: end: 20220505
  4. ONCASPAR [Suspect]
     Active Substance: PEGASPARGASE
     Dates: end: 20220509
  5. RITUXIMAB [Suspect]
     Active Substance: RITUXIMAB
     Dates: end: 20220505
  6. VINCRISTINE SULFATE [Suspect]
     Active Substance: VINCRISTINE SULFATE
     Dates: end: 20220509

REACTIONS (3)
  - Staphylococcus test positive [None]
  - Cerebrospinal fluid leakage [None]
  - Sepsis [None]

NARRATIVE: CASE EVENT DATE: 20220513
